FAERS Safety Report 5276608-0 (Version None)
Quarter: 2007Q1

REPORT INFORMATION
  Report Type: 
  Country: None (occurrence: None)
  Receive Date: 20070327
  Receipt Date: 20070314
  Transmission Date: 20070707
  Serious: Yes (Other)
  Sender: FDA-Public Use
  Company Number: PHBS2007GT04586

PATIENT
  Age: 69 Year
  Sex: Female

DRUGS (4)
  1. DIOVAN [Suspect]
     Indication: HYPERTENSION
     Dosage: 160 MG/DAY
     Route: 048
     Dates: start: 20050117
  2. GLIMEPIRIDE [Concomitant]
     Dosage: 2 MG, BID
     Route: 048
     Dates: start: 20040425, end: 20060101
  3. METFORMIN HCL [Concomitant]
     Dosage: 500 MG, QD
     Route: 048
     Dates: start: 20040425, end: 20060101
  4. GLUCOVANCE [Concomitant]
     Dosage: 1 DF, BID
     Route: 048

REACTIONS (8)
  - BLOOD ALKALINE PHOSPHATASE INCREASED [None]
  - COMPUTERISED TOMOGRAM ABNORMAL [None]
  - GASTRIC DISORDER [None]
  - HEPATIC NEOPLASM [None]
  - HEPATIC STEATOSIS [None]
  - LEIOMYOMA [None]
  - NEUROPATHY PERIPHERAL [None]
  - RADICULOPATHY [None]
